FAERS Safety Report 24674905 (Version 2)
Quarter: 2024Q4

REPORT INFORMATION
  Report Type: Spontaneous
  Country: GB (occurrence: GB)
  Receive Date: 20241128
  Receipt Date: 20241203
  Transmission Date: 20250115
  Serious: Yes (Hospitalization, Other)
  Sender: MYLAN
  Company Number: GB-MYLANLABS-2024M1103387

PATIENT
  Sex: Male

DRUGS (1)
  1. CLOZARIL [Suspect]
     Active Substance: CLOZAPINE
     Indication: Schizophrenia
     Dosage: UNK
     Route: 048
     Dates: start: 20130524, end: 20241029

REACTIONS (4)
  - Hospitalisation [Unknown]
  - Electrocardiogram QT prolonged [Recovered/Resolved]
  - Psychotic disorder [Unknown]
  - Loss of personal independence in daily activities [Unknown]
